FAERS Safety Report 9391731 (Version 2)
Quarter: 2013Q3

REPORT INFORMATION
  Report Type: Spontaneous
  Country: JP (occurrence: JP)
  Receive Date: 20130709
  Receipt Date: 20130712
  Transmission Date: 20140515
  Serious: Yes (Hospitalization)
  Sender: FDA-Public Use
  Company Number: JP-GLAXOSMITHKLINE-B0904360A

PATIENT
  Age: 29 Year
  Sex: Female

DRUGS (4)
  1. LAMICTAL [Suspect]
     Indication: BIPOLAR II DISORDER
     Dosage: 25MG PER DAY
     Route: 048
     Dates: start: 20130515, end: 20130528
  2. LAMICTAL [Suspect]
     Indication: BIPOLAR II DISORDER
     Dosage: 50MG PER DAY
     Route: 048
     Dates: start: 20130529, end: 20130611
  3. JZOLOFT [Concomitant]
     Route: 048
  4. LANDSEN [Concomitant]
     Route: 048

REACTIONS (7)
  - Drug eruption [Recovered/Resolved]
  - Rubella [Unknown]
  - Rash generalised [Unknown]
  - Swelling face [Unknown]
  - Hyperthermia [Unknown]
  - Lymphadenopathy [Unknown]
  - Skin disorder [Unknown]
